FAERS Safety Report 6329360-1 (Version None)
Quarter: 2009Q3

REPORT INFORMATION
  Report Type: 
  Country: None (occurrence: None)
  Receive Date: 20090826
  Receipt Date: 20090820
  Transmission Date: 20100115
  Serious: No
  Sender: FDA-Public Use
  Company Number: US-JNJFOC-20090807248

PATIENT
  Sex: Male
  Weight: 74.84 kg

DRUGS (4)
  1. FENTANYL TRANSDERMAL SYSTEM [Suspect]
     Indication: PAIN
     Route: 062
  2. GABAPENTIN [Concomitant]
     Indication: CONVULSION
     Route: 048
  3. ZOLPIDEM [Concomitant]
     Indication: SLEEP DISORDER
     Route: 048
  4. TYLENOL (CAPLET) [Concomitant]
     Indication: BREAKTHROUGH PAIN
     Dosage: AS NEEDED
     Route: 048

REACTIONS (4)
  - DEVICE LEAKAGE [None]
  - INAPPROPRIATE SCHEDULE OF DRUG ADMINISTRATION [None]
  - THERAPY CESSATION [None]
  - WITHDRAWAL SYNDROME [None]
